FAERS Safety Report 21978437 (Version 3)
Quarter: 2024Q3

REPORT INFORMATION
  Report Type: Other
  Country: CA (occurrence: CA)
  Receive Date: 20230210
  Receipt Date: 20240805
  Transmission Date: 20241017
  Serious: Yes (Other)
  Sender: PFIZER
  Company Number: CA-PFIZER INC-202300060498

PATIENT

DRUGS (11)
  1. AZITHROMYCIN [Suspect]
     Active Substance: AZITHROMYCIN
     Indication: Foetal exposure during pregnancy
     Dosage: 1 G, QD (REGIMEN 2)
     Route: 064
  2. DEXTROSE [Suspect]
     Active Substance: DEXTROSE\DEXTROSE MONOHYDRATE
     Indication: Foetal exposure during pregnancy
     Dosage: UNK
     Route: 064
  3. AMPICILLIN [Suspect]
     Active Substance: AMPICILLIN
     Indication: Foetal exposure during pregnancy
     Dosage: 1 G, Q6H (EVERY 6 HOURS)
     Route: 064
  4. ATOSIBAN [Suspect]
     Active Substance: ATOSIBAN
     Indication: Foetal exposure during pregnancy
     Dosage: UNK
     Route: 064
  5. BETAMETHASONE [Suspect]
     Active Substance: BETAMETHASONE\BETAMETHASONE DIPROPIONATE
     Indication: Foetal exposure during pregnancy
     Dosage: 12 MG, Q24H (2 DOSES, 24 HOURS APART)
     Route: 064
  6. GENTAMICIN [Suspect]
     Active Substance: GENTAMICIN
     Indication: Foetal exposure during pregnancy
     Dosage: 80 MG, Q8H (EVERY 8 HOURS) (REGIMEN 2)
     Route: 064
  7. MAGNESIUM SULFATE [Suspect]
     Active Substance: MAGNESIUM SULFATE\MAGNESIUM SULFATE HEPTAHYDRATE
     Indication: Foetal exposure during pregnancy
     Dosage: UNK
     Route: 064
  8. AZITHROMYCIN [Suspect]
     Active Substance: AZITHROMYCIN
     Indication: Lactobacillus infection
     Dosage: 1 G, 1X/DAY
     Route: 064
  9. AZITHROMYCIN [Suspect]
     Active Substance: AZITHROMYCIN
     Indication: Antibiotic therapy
     Dosage: UNK
     Route: 064
  10. GENTAMICIN SULFATE [Suspect]
     Active Substance: GENTAMICIN SULFATE
     Indication: Lactobacillus infection
     Dosage: 80 MG, 3X/DAY (EVERY 8 HOURS)
     Route: 064
  11. GENTAMICIN SULFATE [Suspect]
     Active Substance: GENTAMICIN SULFATE
     Indication: Antibiotic therapy
     Dosage: UNK
     Route: 064

REACTIONS (2)
  - Premature baby [Unknown]
  - Foetal exposure during pregnancy [Unknown]
